FAERS Safety Report 8961233 (Version 1)
Quarter: 2012Q4

REPORT INFORMATION
  Report Type: 
  Country: US (occurrence: US)
  Receive Date: 20121213
  Receipt Date: 20121213
  Transmission Date: 20130627
  Serious: No
  Sender: FDA-Public Use
  Company Number: US-BAYER-2012-129290

PATIENT
  Age: 57 Year
  Sex: Female

DRUGS (3)
  1. GADAVIST [Suspect]
     Indication: MRI
     Dosage: 7 ml, UNK
     Dates: start: 20121207, end: 20121207
  2. GADAVIST [Suspect]
     Indication: THYROID CANCER
  3. GADAVIST [Suspect]
     Indication: LIVER DISORDER

REACTIONS (3)
  - Urticaria [None]
  - Pruritus [None]
  - Nausea [None]
